FAERS Safety Report 5689130-4 (Version None)
Quarter: 2008Q1

REPORT INFORMATION
  Report Type: 
  Country: None (occurrence: None)
  Receive Date: 20080331
  Receipt Date: 19861008
  Transmission Date: 20080703
  Serious: Yes (Death, Life-Threatening, Hospitalization)
  Sender: FDA-Public Use
  Company Number: HK-ROCHE-860102622001

PATIENT
  Age: 20 Year
  Sex: Male
  Weight: 61 kg

DRUGS (5)
  1. FLUMAZENIL [Suspect]
     Indication: DRUG USE FOR UNKNOWN INDICATION
     Route: 042
  2. MIDAZOLAM HCL [Interacting]
     Indication: LIGHT ANAESTHESIA
     Route: 042
     Dates: start: 19860918, end: 19860918
  3. DIATRIZOATE MEGLUMINE [Interacting]
     Route: 013
     Dates: start: 19860918, end: 19860918
  4. TRANSAMIN [Concomitant]
     Route: 042
  5. MANNITOL [Concomitant]
     Route: 042

REACTIONS (1)
  - COMA [None]
